FAERS Safety Report 23560877 (Version 1)
Quarter: 2024Q1

REPORT INFORMATION
  Report Type: Report from Study
  Country: AU (occurrence: AU)
  Receive Date: 20240223
  Receipt Date: 20240223
  Transmission Date: 20240410
  Serious: Yes (Death)
  Sender: FDA-Public Use
  Company Number: AU-BEH-2024168915

PATIENT
  Age: 76 Year
  Sex: Male
  Weight: 71 kg

DRUGS (5)
  1. HIZENTRA [Suspect]
     Active Substance: HUMAN IMMUNOGLOBULIN G
     Indication: Secondary immunodeficiency
     Dosage: 7 GRAM, QW
     Route: 058
  2. LINEZOLID [Concomitant]
     Active Substance: LINEZOLID
  3. METOPROLOL [Concomitant]
     Active Substance: METOPROLOL
  4. RABEPRAZOLE [Concomitant]
     Active Substance: RABEPRAZOLE
  5. PRISTIQ EXTENDED-RELEASE [Concomitant]
     Active Substance: DESVENLAFAXINE SUCCINATE

REACTIONS (1)
  - Death [Fatal]

NARRATIVE: CASE EVENT DATE: 20230717
